FAERS Safety Report 20046438 (Version 4)
Quarter: 2022Q2

REPORT INFORMATION
  Report Type: Report from Study
  Country: US (occurrence: US)
  Receive Date: 20211109
  Receipt Date: 20220422
  Transmission Date: 20220720
  Serious: No
  Sender: FDA-Public Use
  Company Number: US-NOVARTISTESTPH-NVSC2021US253789

PATIENT
  Sex: Female

DRUGS (1)
  1. KESIMPTA [Suspect]
     Active Substance: OFATUMUMAB
     Indication: Multiple sclerosis
     Route: 058
     Dates: start: 20211001

REACTIONS (6)
  - Sleep disorder [Recovering/Resolving]
  - Pain in extremity [Not Recovered/Not Resolved]
  - Peripheral coldness [Recovered/Resolved]
  - Headache [Unknown]
  - Limb discomfort [Unknown]
  - Peripheral swelling [Unknown]
